FAERS Safety Report 7378113-4 (Version None)
Quarter: 2011Q1

REPORT INFORMATION
  Report Type: 
  Country: None (occurrence: None)
  Receive Date: 20110317
  Receipt Date: 20110307
  Transmission Date: 20110831
  Serious: Yes (Hospitalization)
  Sender: FDA-Public Use
  Company Number: DSU-2011-01658

PATIENT
  Age: 88 Year
  Sex: Female
  Weight: 74.8435 kg

DRUGS (3)
  1. BENICAR [Suspect]
     Indication: HYPERTENSION
     Dosage: 40 MG (40 MG,QD), PER ORAL; 20 MG (20 MG,QD), PER ORAL
     Route: 048
     Dates: start: 20080101
  2. BENICAR [Suspect]
     Indication: HYPERTENSION
     Dosage: 40 MG (40 MG,QD), PER ORAL; 20 MG (20 MG,QD), PER ORAL
     Route: 048
     Dates: end: 20080101
  3. ASPIRIN [Concomitant]

REACTIONS (3)
  - HYPOTENSION [None]
  - SYNCOPE [None]
  - DIZZINESS [None]
